FAERS Safety Report 13130449 (Version 1)
Quarter: 2017Q1

REPORT INFORMATION
  Report Type: Report from Study
  Country: US (occurrence: US)
  Receive Date: 20170119
  Receipt Date: 20170119
  Transmission Date: 20170428
  Serious: Yes (Other)
  Sender: FDA-Public Use
  Company Number: US-ASTRAZENECA-2016SE19645

PATIENT
  Age: 879 Month
  Sex: Female
  Weight: 57.6 kg

DRUGS (5)
  1. ASPIRIN. [Concomitant]
     Active Substance: ASPIRIN
     Route: 048
  2. BRILINTA [Suspect]
     Active Substance: TICAGRELOR
     Indication: STENT PLACEMENT
     Route: 048
     Dates: start: 201602
  3. CARVEDILOL. [Concomitant]
     Active Substance: CARVEDILOL
     Indication: MYOCARDIAL INFARCTION
     Route: 048
  4. LISINOPRIL. [Suspect]
     Active Substance: LISINOPRIL
     Dosage: 5.0MG UNKNOWN
     Route: 048
     Dates: start: 201602
  5. LISINOPRIL. [Suspect]
     Active Substance: LISINOPRIL
     Dosage: 5.0MG UNKNOWN
     Route: 048

REACTIONS (4)
  - Skin neoplasm bleeding [Unknown]
  - Basal cell carcinoma [Unknown]
  - Product use issue [Unknown]
  - Dizziness [Unknown]

NARRATIVE: CASE EVENT DATE: 201606
